FAERS Safety Report 23985892 (Version 1)
Quarter: 2024Q2

REPORT INFORMATION
  Report Type: Spontaneous
  Country: US (occurrence: None)
  Receive Date: 20240617
  Receipt Date: 20240617
  Transmission Date: 20240716
  Serious: Yes (Hospitalization)
  Sender: FDA-Public Use
  Company Number: None

PATIENT
  Sex: Female

DRUGS (1)
  1. OXBRYTA [Suspect]
     Active Substance: VOXELOTOR
     Indication: Sickle cell disease
     Dosage: DISSOLVE 3TABLETS IN 15 ML OF CLEAR, ROOM TEMPERATURE LIQIUID AND DRINK BY MOUTH L TIME A DAY. DO NO
     Dates: start: 202404

REACTIONS (1)
  - Sickle cell anaemia with crisis [None]
